FAERS Safety Report 13099377 (Version 1)
Quarter: 2017Q1

REPORT INFORMATION
  Report Type: Spontaneous
  Country: US (occurrence: US)
  Receive Date: 20170109
  Receipt Date: 20170109
  Transmission Date: 20170428
  Serious: No
  Sender: FDA-Public Use
  Company Number: US-PFIZER INC-2016570448

PATIENT
  Age: 44 Year
  Sex: Male

DRUGS (25)
  1. IBRANCE [Suspect]
     Active Substance: PALBOCICLIB
     Indication: COLON CANCER
     Dosage: 125 MG, CYCLIC (21 ON 7 OFF)
     Route: 048
  2. SENNA S [Concomitant]
     Active Substance: DOCUSATE SODIUM\SENNA LEAF
     Indication: CONSTIPATION
     Dosage: 1 TO 2 TAB, TWICE DAILY AS NEEDED
     Route: 048
  3. ERGOCALCIFEROL. [Concomitant]
     Active Substance: ERGOCALCIFEROL
     Indication: VITAMIN D DEFICIENCY
     Dosage: 1 DF, 2X/WEEK
     Route: 048
  4. LIDODERM [Concomitant]
     Active Substance: LIDOCAINE
     Indication: NEOPLASM MALIGNANT
     Dosage: 1 DF, DAILY
     Route: 061
  5. SELENIUM [Concomitant]
     Active Substance: SELENIUM
     Dosage: 1 DF, DAILY
     Route: 048
  6. SILVADENE [Concomitant]
     Active Substance: SILVER SULFADIAZINE
     Dosage: 1 APPLICATION, 2X/DAY
     Route: 061
  7. TYLENOL [Concomitant]
     Active Substance: ACETAMINOPHEN
     Indication: PYREXIA
     Dosage: 500 MG, AS NEEDED (EVERY 6 HOURS)
     Route: 048
  8. AMBIEN [Concomitant]
     Active Substance: ZOLPIDEM TARTRATE
     Indication: SLEEP DISORDER
     Dosage: 1 DF, AS NEEDED
     Route: 048
  9. CODEINE SULFATE. [Concomitant]
     Active Substance: CODEINE SULFATE
     Indication: HEADACHE
     Dosage: 1 DF, AS NEEDED (EVERY 4 HOURS)
     Route: 048
  10. FOLIC ACID. [Concomitant]
     Active Substance: FOLIC ACID
     Dosage: 1 DF, DAILY
     Route: 048
  11. GAS-X [Concomitant]
     Active Substance: DIMETHICONE
     Indication: DYSPEPSIA
     Dosage: 80 MG, AS NEEDED (AFTER MEALS AND AT BEDTIME)
  12. FIORICET [Concomitant]
     Active Substance: ACETAMINOPHEN\BUTALBITAL\CAFFEINE
     Indication: HEADACHE
     Dosage: 2 DF, AS NEEDED (EVERY 4 HOURS)
     Route: 048
  13. DABRAFENIB [Concomitant]
     Active Substance: DABRAFENIB
     Indication: BREAST CANCER
     Dosage: 1 DF, 2X/DAY
     Route: 048
  14. POLYSACCHARIDE IRON [Concomitant]
     Dosage: 1 DF, DAILY
     Route: 048
  15. ATIVAN [Concomitant]
     Active Substance: LORAZEPAM
     Indication: NAUSEA
     Dosage: 1 DF, THREE TIMES DAILY AS NEEDED
     Route: 048
  16. ATIVAN [Concomitant]
     Active Substance: LORAZEPAM
     Indication: VOMITING
  17. MS CONTIN [Concomitant]
     Active Substance: MORPHINE SULFATE
     Indication: PAIN
     Dosage: 1 DF, EVERY 8 HOURS AS NEEDED
     Route: 048
  18. POTASSIUM CHLORIDE. [Concomitant]
     Active Substance: POTASSIUM CHLORIDE
     Dosage: 1 DF, DAILY
     Route: 048
  19. TRAMETINIB [Concomitant]
     Active Substance: TRAMETINIB
     Indication: BRAF GENE MUTATION
     Dosage: 1 DF, DAILY
     Route: 048
  20. LOMOTIL [Concomitant]
     Active Substance: ATROPINE SULFATE\DIPHENOXYLATE HYDROCHLORIDE
     Indication: DIARRHOEA
     Dosage: 1 DF, 4X/DAY  [ONE TABLET AFTER EACH LOOSE STOOL]
     Route: 048
  21. FENTANYL. [Concomitant]
     Active Substance: FENTANYL
     Indication: NEOPLASM MALIGNANT
     Dosage: 1 DF, EVERY 72 HOURS
     Route: 061
  22. ZINC. [Concomitant]
     Active Substance: ZINC
     Dosage: 1 DF, DAILY
     Route: 048
  23. DRONABINOL. [Concomitant]
     Active Substance: DRONABINOL
     Indication: INCREASED APPETITE
     Dosage: 1 DF, 2X/DAY (BEFORE AM AND PM MEAL)
     Route: 048
  24. LACTULOSE. [Concomitant]
     Active Substance: LACTULOSE
     Indication: CONSTIPATION
     Dosage: 30 ML, THREE TIMES DAILY AS NEEDED
     Route: 048
  25. PROCHLORPERAZINE. [Concomitant]
     Active Substance: PROCHLORPERAZINE
     Indication: NAUSEA
     Dosage: 1 DF, 3X/DAY
     Route: 048

REACTIONS (5)
  - Haematocrit decreased [Unknown]
  - Red cell distribution width increased [Unknown]
  - Product use issue [Unknown]
  - Red blood cell count decreased [Unknown]
  - Haemoglobin decreased [Unknown]
